FAERS Safety Report 8274655-8 (Version None)
Quarter: 2012Q2

REPORT INFORMATION
  Report Type: 
  Country: None (occurrence: None)
  Receive Date: 20120411
  Receipt Date: 20120404
  Transmission Date: 20120825
  Serious: Yes (Hospitalization)
  Sender: FDA-Public Use
  Company Number: NO-GLAXOSMITHKLINE-B0778622A

PATIENT
  Sex: Female

DRUGS (7)
  1. CODEINE [Concomitant]
     Indication: PRODUCT USED FOR UNKNOWN INDICATION
     Dosage: 25MG PER DAY
     Route: 065
  2. CEFTRIAXONE [Suspect]
     Indication: INFECTION
     Dosage: 4G PER DAY
     Route: 042
  3. TRAMADOL HCL [Concomitant]
     Indication: PRODUCT USED FOR UNKNOWN INDICATION
     Dosage: 50MG PER DAY
     Route: 065
  4. IBUPROFEN [Concomitant]
     Indication: PRODUCT USED FOR UNKNOWN INDICATION
     Route: 065
  5. ACETAMINOPHEN [Concomitant]
     Indication: PYREXIA
     Dosage: 1G PER DAY
     Route: 065
  6. ENOXAPARIN SODIUM [Concomitant]
     Indication: PRODUCT USED FOR UNKNOWN INDICATION
     Dosage: 40MG PER DAY
     Route: 065
  7. ACYCLOVIR [Suspect]
     Indication: MENINGITIS
     Dosage: 600MG PER DAY
     Route: 042
     Dates: start: 20120103, end: 20120105

REACTIONS (2)
  - SERUM FERRITIN INCREASED [None]
  - HEPATIC ENZYME INCREASED [None]
